FAERS Safety Report 5653924-1 (Version None)
Quarter: 2008Q1

REPORT INFORMATION
  Report Type: 
  Country: None (occurrence: None)
  Receive Date: 20080306
  Receipt Date: 20080303
  Transmission Date: 20080703
  Serious: Yes (Death, Hospitalization)
  Sender: FDA-Public Use
  Company Number: PHRM2006FR00880

PATIENT
  Age: 83 Year
  Sex: Female

DRUGS (5)
  1. COTAREG [Suspect]
     Dosage: 1 DF, QD
     Route: 048
  2. LASILIX [Suspect]
     Dosage: 40 MG/DAY
     Route: 048
  3. PREVISCAN [Concomitant]
     Route: 048
  4. TRINIPATCH [Concomitant]
     Route: 062
  5. TAHOR [Concomitant]
     Route: 048

REACTIONS (8)
  - BLOOD CREATININE INCREASED [None]
  - BLOOD UREA INCREASED [None]
  - CEREBROVASCULAR ACCIDENT [None]
  - CREATININE RENAL CLEARANCE DECREASED [None]
  - DEHYDRATION [None]
  - DRUG INTERACTION [None]
  - PROTEINURIA [None]
  - RENAL FAILURE ACUTE [None]
